APPROVED DRUG PRODUCT: SODIUM CHLORIDE 14.6%
Active Ingredient: SODIUM CHLORIDE
Strength: 100MEQ/40ML (2.5MEQ/ML)
Dosage Form/Route: SOLUTION;INTRAVENOUS
Application: N018897 | Product #002 | TE Code: AP
Applicant: HOSPIRA INC
Approved: Jul 20, 1984 | RLD: Yes | RS: Yes | Type: RX